FAERS Safety Report 9461592 (Version 2)
Quarter: 2014Q1

REPORT INFORMATION
  Report Type: Report from Study
  Country: JP (occurrence: JP)
  Receive Date: 20130816
  Receipt Date: 20140129
  Transmission Date: 20141002
  Serious: Yes (Death, Hospitalization)
  Sender: FDA-Public Use
  Company Number: JP-SHIRE-ALL1-2013-05542

PATIENT
  Age: 44 Year
  Sex: Male

DRUGS (11)
  1. 405 (LANTHANUM CARBONATE) [Suspect]
     Indication: HYPERPHOSPHATAEMIA
     Dosage: 750 MG, 1X/DAY:QD
     Route: 048
     Dates: start: 20100525
  2. CALTAN [Concomitant]
     Indication: HYPERPHOSPHATAEMIA
     Dosage: 1.5 G, UNKNOWN
     Route: 048
     Dates: start: 20080329
  3. DIOVAN [Concomitant]
     Indication: HYPERTENSION
     Dosage: 80 MG, UNKNOWN
     Route: 048
  4. ALDOMET                            /00000101/ [Concomitant]
     Indication: HYPERTENSION
     Dosage: 1000 MG, UNKNOWN
     Route: 048
  5. ADALAT [Concomitant]
     Indication: HYPERTENSION
     Dosage: 60 MG, UNKNOWN
     Route: 048
  6. ZYLORIC [Concomitant]
     Indication: HYPERURICAEMIA
     Dosage: 200 MG, UNKNOWN
     Route: 048
  7. BAYASPIRIN [Concomitant]
     Indication: THROMBOSIS PROPHYLAXIS
     Dosage: 100 MG, UNKNOWN
     Route: 048
  8. TAKEPRON [Concomitant]
     Indication: GASTROOESOPHAGEAL REFLUX DISEASE
     Dosage: 15 MG, UNKNOWN
     Route: 048
  9. ARGAMATE [Concomitant]
     Indication: HYPERKALAEMIA
     Dosage: 7.5 G, UNKNOWN
     Route: 048
  10. EPOGIN [Concomitant]
     Indication: NEPHROGENIC ANAEMIA
     Dosage: 1500 IU, OTHER (ON THE DAY OF HAEMODIALYSIS)
     Route: 041
  11. FERRICON [Concomitant]
     Indication: NEPHROGENIC ANAEMIA
     Dosage: 50 MG, 1X/WEEK
     Route: 041

REACTIONS (2)
  - Cardiac failure acute [Fatal]
  - Pneumonia [Recovered/Resolved]
